FAERS Safety Report 6827789-6 (Version None)
Quarter: 2010Q3

REPORT INFORMATION
  Report Type: 
  Country: None (occurrence: None)
  Receive Date: 20100709
  Receipt Date: 20070128
  Transmission Date: 20110219
  Serious: No
  Sender: FDA-Public Use
  Company Number: US-PFIZER INC-2007008490

PATIENT
  Sex: Female
  Weight: 65.77 kg

DRUGS (1)
  1. CHANTIX [Suspect]
     Indication: SMOKING CESSATION THERAPY
     Dates: start: 20070101, end: 20070127

REACTIONS (5)
  - HEADACHE [None]
  - LIBIDO DECREASED [None]
  - NAUSEA [None]
  - VIRAL INFECTION [None]
  - VOMITING [None]
